FAERS Safety Report 20523861 (Version 2)
Quarter: 2022Q1

REPORT INFORMATION
  Report Type: Spontaneous
  Country: FR (occurrence: FR)
  Receive Date: 20220228
  Receipt Date: 20220307
  Transmission Date: 20220423
  Serious: Yes (Life-Threatening, Hospitalization, Other)
  Sender: FDA-Public Use
  Company Number: FR-STADA-242914

PATIENT
  Age: 55 Year
  Sex: Male

DRUGS (8)
  1. DOXORUBICIN [Suspect]
     Active Substance: DOXORUBICIN
     Indication: Follicular lymphoma stage I
     Dosage: UNK (CHOP CHEMOTHERAPY REGIMEN)
     Route: 065
  2. PREDNISONE [Suspect]
     Active Substance: PREDNISONE
     Indication: Follicular lymphoma stage I
     Dosage: UNK (CHOP CHEMOTHERAPY REGIMEN)
     Route: 065
  3. CYCLOPHOSPHAMIDE [Suspect]
     Active Substance: CYCLOPHOSPHAMIDE
     Indication: Follicular lymphoma stage I
     Dosage: UNK (CHOP CHEMOTHERAPY REGIMEN)
     Route: 065
  4. OBINUTUZUMAB [Suspect]
     Active Substance: OBINUTUZUMAB
     Indication: Follicular lymphoma stage I
     Dosage: UNK
     Route: 065
  5. VINCRISTINE [Suspect]
     Active Substance: VINCRISTINE
     Indication: Follicular lymphoma stage I
     Dosage: UNK (CHOP CHEMOTHERAPY REGIMEN)
     Route: 065
  6. BAMLANIVIMAB [Concomitant]
     Active Substance: BAMLANIVIMAB
     Indication: COVID-19
     Dosage: 700 MILLIGRAM (TOTAL) (ONE DOSE ON APRIL 15TH)
     Route: 065
  7. ETESEVIMAB [Concomitant]
     Active Substance: ETESEVIMAB
     Indication: COVID-19
     Dosage: 1400 MILLIGRAM (TOTAL) (ONE DOSE ON APRIL 15TH)
     Route: 065
  8. HUMAN PLASMA [Concomitant]
     Active Substance: HUMAN PLASMA
     Indication: COVID-19
     Dosage: UNK (ON APRIL 30TH AND MAY 1ST)
     Route: 050

REACTIONS (3)
  - COVID-19 pneumonia [Recovered/Resolved]
  - Hypoxia [Recovered/Resolved]
  - COVID-19 [Recovered/Resolved]

NARRATIVE: CASE EVENT DATE: 20190401
